FAERS Safety Report 7635663-0 (Version None)
Quarter: 2011Q3

REPORT INFORMATION
  Report Type: 
  Country: None (occurrence: None)
  Receive Date: 20110726
  Receipt Date: 20110720
  Transmission Date: 20111222
  Serious: Yes (Life-Threatening, Hospitalization, Disabling, Other)
  Sender: FDA-Public Use
  Company Number: PHHY2010US54059

PATIENT
  Sex: Female
  Weight: 56.236 kg

DRUGS (20)
  1. SYNTHROID [Concomitant]
     Dosage: 125 MG, QD
  2. ASPIRIN [Concomitant]
     Dosage: UNK UKN, UNK
  3. ADVAIR DISKUS 100/50 [Concomitant]
     Dosage: UNK UKN, UNK
  4. CHOLESTEROL [Concomitant]
     Dosage: UNK UKN, UNK
  5. COREG [Concomitant]
     Dosage: UNK UKN, UNK
  6. OSCAL [Concomitant]
     Dosage: UNK UKN, UNK
  7. METFORMIN HCL [Suspect]
     Indication: DIABETES MELLITUS
     Dosage: 1000 MG, BID
     Route: 048
     Dates: start: 20100405, end: 20100804
  8. LASIX [Suspect]
     Indication: CARDIAC FAILURE CONGESTIVE
     Dosage: 40 MG, QD
     Route: 048
     Dates: start: 20100405, end: 20100804
  9. LISINOPRIL [Suspect]
     Indication: HYPERTENSION
     Dosage: 10 MG, QD
     Route: 048
     Dates: start: 20100405, end: 20100804
  10. PRANDIN [Concomitant]
     Dosage: 1 MG, TID
  11. SODIUM BICARBONATE [Concomitant]
     Dosage: UNK UKN, UNK
  12. INSULIN [Concomitant]
     Dosage: UNK UKN, UNK
  13. FOSAMAX [Concomitant]
     Dosage: UNK UKN, UNK
  14. ATENOLOL [Concomitant]
     Dosage: UNK UKN, UNK
  15. SIMVASTATIN [Concomitant]
     Dosage: 40 MG, QD
  16. RECLAST [Suspect]
     Indication: OSTEOPOROSIS
     Dosage: 5 MG/100 ML ONCE
     Route: 042
     Dates: start: 20100726
  17. SPIRIVA [Concomitant]
     Dosage: 18 MG, QD
  18. ASCORBIC ACID [Concomitant]
     Dosage: UNK UKN, UNK
  19. OXYGEN [Concomitant]
     Dosage: UNK UKN, UNK
  20. KAYEXALATE [Concomitant]
     Dosage: UNK UKN, UNK

REACTIONS (34)
  - URINARY CASTS [None]
  - HYPERKALAEMIA [None]
  - FEELING COLD [None]
  - RENAL IMPAIRMENT [None]
  - HYPOVOLAEMIA [None]
  - ELECTROCARDIOGRAM QRS COMPLEX PROLONGED [None]
  - CARDIOACTIVE DRUG LEVEL INCREASED [None]
  - BLOOD CREATININE INCREASED [None]
  - HYPOGLYCAEMIA [None]
  - BLOOD PRESSURE SYSTOLIC INCREASED [None]
  - DEHYDRATION [None]
  - RENAL TUBULAR NECROSIS [None]
  - BLOOD UREA INCREASED [None]
  - METABOLIC ACIDOSIS [None]
  - RENAL FAILURE [None]
  - GLOMERULAR FILTRATION RATE DECREASED [None]
  - FATIGUE [None]
  - MALAISE [None]
  - ASTHENIA [None]
  - GASTROINTESTINAL HAEMORRHAGE [None]
  - LEUKOCYTOSIS [None]
  - MENTAL STATUS CHANGES [None]
  - ELECTROCARDIOGRAM ST-T CHANGE [None]
  - DYSPNOEA [None]
  - DECREASED APPETITE [None]
  - FAECES DISCOLOURED [None]
  - LACTIC ACIDOSIS [None]
  - MEMORY IMPAIRMENT [None]
  - ANAEMIA [None]
  - RENAL FAILURE ACUTE [None]
  - BLOOD BICARBONATE DECREASED [None]
  - RENAL CYST HAEMORRHAGE [None]
  - BUNDLE BRANCH BLOCK LEFT [None]
  - BLOOD PRESSURE DIASTOLIC DECREASED [None]
